FAERS Safety Report 6594804-7 (Version None)
Quarter: 2010Q1

REPORT INFORMATION
  Report Type: 
  Country: None (occurrence: None)
  Receive Date: 20100222
  Receipt Date: 20100210
  Transmission Date: 20100710
  Serious: Yes (Other)
  Sender: FDA-Public Use
  Company Number: US-PFIZER INC-2010018195

PATIENT
  Age: 19 Year
  Sex: Female

DRUGS (2)
  1. GEODON [Suspect]
     Indication: BIPOLAR DISORDER
     Dosage: 80 MG, 2X/DAY
  2. LITHIUM [Suspect]

REACTIONS (5)
  - ABNORMAL BEHAVIOUR [None]
  - EYE DISORDER [None]
  - LOSS OF CONSCIOUSNESS [None]
  - OVERWEIGHT [None]
  - SEDATION [None]
